FAERS Safety Report 5230424-4 (Version None)
Quarter: 2007Q1

REPORT INFORMATION
  Report Type: 
  Country: None (occurrence: None)
  Receive Date: 20070201
  Receipt Date: 20070122
  Transmission Date: 20070707
  Serious: Yes (Life-Threatening, Hospitalization)
  Sender: FDA-Public Use
  Company Number: 230004M07GBR

PATIENT
  Age: 45 Year
  Sex: Female

DRUGS (2)
  1. REBIF [Suspect]
     Indication: RELAPSING-REMITTING MULTIPLE SCLEROSIS
     Dosage: 22, 3 IN 1 WEEKS, SUBCTANEOUS
     Route: 058
     Dates: start: 20021101, end: 20070111
  2. BACLOFEN [Concomitant]

REACTIONS (1)
  - CEREBRAL HAEMORRHAGE [None]
